FAERS Safety Report 21984799 (Version 5)
Quarter: 2023Q1

REPORT INFORMATION
  Report Type: Spontaneous
  Country: CL (occurrence: CL)
  Receive Date: 20230213
  Receipt Date: 20230329
  Transmission Date: 20230417
  Serious: No
  Sender: FDA-Public Use
  Company Number: CL-PFIZER INC-PV202300023684

PATIENT
  Sex: Female

DRUGS (1)
  1. GENOTROPIN [Suspect]
     Active Substance: SOMATROPIN
     Dosage: UNK

REACTIONS (4)
  - Wrong technique in device usage process [Unknown]
  - Device breakage [Unknown]
  - Incorrect dose administered by device [Unknown]
  - Device issue [Unknown]
